FAERS Safety Report 8458366-1 (Version None)
Quarter: 2012Q2

REPORT INFORMATION
  Report Type: 
  Country: None (occurrence: None)
  Receive Date: 20120622
  Receipt Date: 20120618
  Transmission Date: 20120825
  Serious: Yes (Other)
  Sender: FDA-Public Use
  Company Number: TR-ROXANE LABORATORIES, INC.-2012-RO-01440RO

PATIENT
  Age: 51 Year
  Sex: Male

DRUGS (9)
  1. DEXAMETHASONE [Suspect]
     Indication: MULTIPLE MYELOMA
     Dosage: 40 MG
     Route: 048
  2. BORTEZOMIB [Suspect]
     Indication: MULTIPLE MYELOMA
  3. CYCLOPHOSPHAMIDE [Suspect]
     Indication: MULTIPLE MYELOMA
     Route: 042
  4. MELPHALAN HYDROCHLORIDE [Suspect]
     Indication: BONE MARROW CONDITIONING REGIMEN
     Route: 042
  5. VINCRISTINE [Suspect]
     Indication: MULTIPLE MYELOMA
     Dosage: 0.4 MG
  6. THALIDOMIDE [Suspect]
     Indication: MULTIPLE MYELOMA
     Dosage: 200 MG
  7. ASPIRIN [Suspect]
     Indication: THROMBOSIS PROPHYLAXIS
  8. ADRIAMYCIN PFS [Suspect]
     Indication: MULTIPLE MYELOMA
  9. DEXAMETHASONE [Suspect]

REACTIONS (8)
  - DISEASE PROGRESSION [None]
  - SEPTIC SHOCK [None]
  - RENAL FAILURE ACUTE [None]
  - HEPATOTOXICITY [None]
  - ESCHERICHIA BACTERAEMIA [None]
  - EMBOLISM VENOUS [None]
  - PANCYTOPENIA [None]
  - DRUG INEFFECTIVE [None]
